FAERS Safety Report 8185981-5 (Version None)
Quarter: 2012Q1

REPORT INFORMATION
  Report Type: 
  Country: None (occurrence: None)
  Receive Date: 20120305
  Receipt Date: 20120227
  Transmission Date: 20120608
  Serious: Yes (Hospitalization)
  Sender: FDA-Public Use
  Company Number: US-AMGEN-USASP2012012751

PATIENT
  Age: 73 Year
  Sex: Female

DRUGS (1)
  1. ENBREL [Suspect]
     Indication: RHEUMATOID ARTHRITIS
     Dosage: 50 MG, QWK
     Dates: start: 20110912, end: 20120219

REACTIONS (6)
  - DISTURBANCE IN ATTENTION [None]
  - CYSTITIS [None]
  - HIP FRACTURE [None]
  - SPINAL COMPRESSION FRACTURE [None]
  - ABDOMINAL PAIN UPPER [None]
  - MUSCLE SPASMS [None]
